FAERS Safety Report 9335353 (Version 1)
Quarter: 2013Q2

REPORT INFORMATION
  Report Type: Spontaneous
  Country: ES (occurrence: ES)
  Receive Date: 20130606
  Receipt Date: 20130606
  Transmission Date: 20140414
  Serious: Yes (Life-Threatening, Hospitalization)
  Sender: FDA-Public Use
  Company Number: PHHY2013ES056546

PATIENT
  Age: 73 Year
  Sex: Female

DRUGS (2)
  1. GLIVEC [Suspect]
     Dosage: 400 MG, BID
     Route: 048
     Dates: start: 20121210, end: 20130401
  2. GLIVEC [Suspect]
     Dosage: UNK
     Route: 048

REACTIONS (1)
  - Pneumonitis [Recovered/Resolved]
